FAERS Safety Report 4766274-2 (Version None)
Quarter: 2005Q3

REPORT INFORMATION
  Report Type: 
  Country: None (occurrence: None)
  Receive Date: 20050912
  Receipt Date: 20050901
  Transmission Date: 20060218
  Serious: Yes (Hospitalization)
  Sender: FDA-Public Use
  Company Number: US-MERCK-0509USA00224

PATIENT
  Age: 57 Year
  Sex: Female

DRUGS (3)
  1. VIOXX [Suspect]
     Indication: BURSITIS
     Route: 048
     Dates: start: 20010701, end: 20040901
  2. VIOXX [Suspect]
     Route: 065
     Dates: end: 20010425
  3. CELEBREX [Suspect]
     Route: 065

REACTIONS (8)
  - ANAPHYLACTIC REACTION [None]
  - DRUG INEFFECTIVE [None]
  - EXOSTOSIS [None]
  - MYOCARDIAL INFARCTION [None]
  - OSTEOARTHRITIS [None]
  - THROMBOSIS [None]
  - VASOSPASM [None]
  - VENTRICULAR DYSFUNCTION [None]
